FAERS Safety Report 9034787 (Version 1)
Quarter: 2013Q1

REPORT INFORMATION
  Report Type: Spontaneous
  Country: US (occurrence: US)
  Receive Date: 20130128
  Receipt Date: 20130128
  Transmission Date: 20140127
  Serious: No
  Sender: FDA-Public Use
  Company Number: US-ASTRAZENECA-2013SE05325

PATIENT
  Age: 40 Year
  Sex: Female

DRUGS (6)
  1. PRILOSEC OTC [Suspect]
     Indication: GASTRITIS
     Route: 048
  2. PRILOSEC OTC [Suspect]
     Indication: HYPERCHLORHYDRIA
     Route: 048
  3. PRILOSEC OTC [Suspect]
     Indication: GASTRITIS
     Route: 048
  4. PRILOSEC OTC [Suspect]
     Indication: HYPERCHLORHYDRIA
     Route: 048
  5. PRILOSEC [Suspect]
     Indication: GASTRITIS
     Route: 048
  6. PRILOSEC [Suspect]
     Indication: HYPERCHLORHYDRIA
     Route: 048

REACTIONS (10)
  - Hot flush [Recovered/Resolved]
  - Tremor [Recovered/Resolved]
  - Chest pain [Recovered/Resolved]
  - Pharyngeal hypoaesthesia [Recovered/Resolved]
  - Hypoaesthesia [Recovered/Resolved]
  - Paraesthesia [Recovered/Resolved]
  - Insomnia [Recovered/Resolved]
  - Incorrect dose administered [Unknown]
  - Drug ineffective [Unknown]
  - Off label use [Unknown]
